FAERS Safety Report 7288217-2 (Version None)
Quarter: 2011Q1

REPORT INFORMATION
  Report Type: 
  Country: None (occurrence: None)
  Receive Date: 20110211
  Receipt Date: 20110131
  Transmission Date: 20110831
  Serious: Yes (Death)
  Sender: FDA-Public Use
  Company Number: AU-ACTELION-A-CH2011-44484

PATIENT
  Sex: Male

DRUGS (2)
  1. TRACLEER [Suspect]
     Indication: PULMONARY ARTERIAL HYPERTENSION
     Dosage: 125 MG, BID
     Route: 048
     Dates: start: 20091213, end: 20110101
  2. TRACLEER [Suspect]
     Dosage: 62.5 MG, BID
     Route: 048
     Dates: start: 20091113, end: 20091212

REACTIONS (5)
  - PULMONARY ARTERIAL HYPERTENSION [None]
  - RENAL FAILURE [None]
  - DISEASE PROGRESSION [None]
  - ENDOCARDITIS [None]
  - RIGHT VENTRICULAR FAILURE [None]
